FAERS Safety Report 12213353 (Version 1)
Quarter: 2016Q1

REPORT INFORMATION
  Report Type: Spontaneous
  Country: US (occurrence: None)
  Receive Date: 20160325
  Receipt Date: 20160325
  Transmission Date: 20160526
  Serious: Yes (Other)
  Sender: FDA-Public Use
  Company Number: None

PATIENT
  Age: 50 Year
  Sex: Male
  Weight: 93.2 kg

DRUGS (1)
  1. NALTREXONE [Suspect]
     Active Substance: NALTREXONE
     Indication: ALCOHOL USE
     Route: 058
     Dates: start: 20160301, end: 20160301

REACTIONS (4)
  - Dizziness [None]
  - Nausea [None]
  - Amnesia [None]
  - Vomiting [None]

NARRATIVE: CASE EVENT DATE: 20160301
